FAERS Safety Report 9768192 (Version 1)
Quarter: 2013Q4

REPORT INFORMATION
  Report Type: Spontaneous
  Country: FR (occurrence: FR)
  Receive Date: 20131217
  Receipt Date: 20131217
  Transmission Date: 20140711
  Serious: Yes (Hospitalization)
  Sender: FDA-Public Use
  Company Number: FR-GLAXOSMITHKLINE-B0952866A

PATIENT
  Age: 67 Year
  Sex: Male

DRUGS (7)
  1. ZOPHREN [Suspect]
     Indication: PREMEDICATION
     Dosage: 8MG CYCLIC
     Route: 042
     Dates: start: 20130722, end: 20130722
  2. TAXOTERE [Suspect]
     Indication: HYPOPHARYNGEAL CANCER
     Dosage: 129MG CYCLIC
     Route: 042
     Dates: start: 20130722, end: 20130722
  3. CARBOPLATINE [Suspect]
     Indication: HYPOPHARYNGEAL CANCER
     Dosage: 75MG CYCLIC
     Route: 042
     Dates: start: 20130722, end: 20130722
  4. FLUOROURACIL [Suspect]
     Indication: PHARYNGEAL CANCER
     Dosage: 1290MG CYCLIC
     Route: 042
     Dates: start: 20130722, end: 20130727
  5. SOLUMEDROL [Suspect]
     Indication: PREMEDICATION
     Route: 042
     Dates: start: 20130722, end: 20130722
  6. SOLUPRED [Suspect]
     Indication: PREMEDICATION
     Route: 048
     Dates: start: 20130721, end: 20130723
  7. COZAAR [Concomitant]
     Indication: HYPERTENSION
     Dosage: .5TAB PER DAY
     Route: 048

REACTIONS (3)
  - Agranulocytosis [Recovered/Resolved]
  - Thrombocytopenia [Recovered/Resolved]
  - Pyrexia [Recovered/Resolved]
